FAERS Safety Report 13396486 (Version 3)
Quarter: 2017Q2

REPORT INFORMATION
  Report Type: Spontaneous
  Country: US (occurrence: US)
  Receive Date: 20170403
  Receipt Date: 20170502
  Transmission Date: 20170830
  Serious: Yes (Life-Threatening, Hospitalization, Other)
  Sender: FDA-Public Use
  Company Number: US-009507513-1703USA012825

PATIENT
  Age: 22 Year
  Sex: Female

DRUGS (6)
  1. HYDROCORTONE [Suspect]
     Active Substance: HYDROCORTISONE
     Indication: PITUITARY-DEPENDENT CUSHING^S SYNDROME
     Dosage: 30 MG, THREE TIMES DAILY
     Route: 048
  2. HYDROCORTONE [Suspect]
     Active Substance: HYDROCORTISONE
     Dosage: 20 MG, THREE TIMES DAILY
     Route: 048
  3. HYDROCORTONE [Suspect]
     Active Substance: HYDROCORTISONE
     Dosage: 20 MG, DAILY
     Route: 048
  4. HYDROCORTONE [Suspect]
     Active Substance: HYDROCORTISONE
     Dosage: 20 MG, TWICE DAILY
     Route: 048
  5. HYDROCORTONE [Suspect]
     Active Substance: HYDROCORTISONE
     Dosage: 20 MG, TWICE DAILY , TO BE DECREASED BY 5-10 MG EVERY 2 WEEKS UP TO 20 MG QD
     Route: 048
  6. HYDROCORTONE [Suspect]
     Active Substance: HYDROCORTISONE
     Dosage: 20 MG, ONCE DAILY
     Route: 048

REACTIONS (2)
  - Drug ineffective [Unknown]
  - Idiopathic intracranial hypertension [Recovered/Resolved]
